FAERS Safety Report 15772075 (Version 2)
Quarter: 2019Q1

REPORT INFORMATION
  Report Type: Report from Study
  Country: US (occurrence: US)
  Receive Date: 20181228
  Receipt Date: 20190104
  Transmission Date: 20190417
  Serious: Yes (Other)
  Sender: FDA-Public Use
  Company Number: US-PFIZER INC-2018527787

PATIENT

DRUGS (1)
  1. FLUDARABINE PHOSPHATE. [Suspect]
     Active Substance: FLUDARABINE PHOSPHATE
     Dosage: UNK, (MEDIAN FLU TOTAL DOSE DURING CONDITIONING WAS 200 MG/M^2)

REACTIONS (1)
  - Posterior reversible encephalopathy syndrome [Unknown]
